FAERS Safety Report 5947979-4 (Version None)
Quarter: 2008Q4

REPORT INFORMATION
  Report Type: 
  Country: None (occurrence: None)
  Receive Date: 20081107
  Receipt Date: 20081029
  Transmission Date: 20090506
  Serious: Yes (Death)
  Sender: FDA-Public Use
  Company Number: MSTR-NO-0810S-0110

PATIENT
  Age: 67 Year
  Sex: Male
  Weight: 76 kg

DRUGS (1)
  1. METASTRON [Suspect]
     Indication: METASTATIC PAIN
     Dosage: 3.7 ML, SINGLE DOSE, I.V.
     Route: 042
     Dates: start: 20080205, end: 20080205

REACTIONS (1)
  - WHITE BLOOD CELL COUNT DECREASED [None]
